FAERS Safety Report 5265877-9 (Version None)
Quarter: 2007Q1

REPORT INFORMATION
  Report Type: 
  Country: None (occurrence: None)
  Receive Date: 20070312
  Receipt Date: 20070312
  Transmission Date: 20070707
  Serious: Yes (Life-Threatening)
  Sender: FDA-Public Use
  Company Number: None

PATIENT
  Age: 64 Year
  Sex: Male
  Weight: 112.4921 kg

DRUGS (2)
  1. LIPITOR [Suspect]
     Indication: BLOOD CHOLESTEROL INCREASED
     Dosage: 20MG 1 DAILY PO
     Route: 048
     Dates: start: 20011001, end: 20020315
  2. ZOCOR [Suspect]
     Indication: BLOOD CHOLESTEROL INCREASED
     Dosage: 40MG 1 DAILY SUBDERMAL
     Route: 059
     Dates: start: 20020329

REACTIONS (39)
  - ACROCHORDON [None]
  - ANGER [None]
  - APNOEA [None]
  - ARTHRALGIA [None]
  - ASTHENIA [None]
  - BLOOD CHOLESTEROL INCREASED [None]
  - BURNING SENSATION [None]
  - COGNITIVE DISORDER [None]
  - DRY SKIN [None]
  - DYSPNOEA [None]
  - ECZEMA [None]
  - EPICONDYLITIS [None]
  - EXFOLIATIVE RASH [None]
  - FATIGUE [None]
  - FRUSTRATION [None]
  - GAIT DISTURBANCE [None]
  - GASTROENTERITIS VIRAL [None]
  - GASTROOESOPHAGEAL REFLUX DISEASE [None]
  - HERPES SIMPLEX [None]
  - HYPERHIDROSIS [None]
  - HYPERSOMNIA [None]
  - HYPOTRICHOSIS [None]
  - INSOMNIA [None]
  - MEMORY IMPAIRMENT [None]
  - MUSCLE SPASMS [None]
  - MUSCLE TWITCHING [None]
  - NASOPHARYNGITIS [None]
  - NOCTURIA [None]
  - PAIN [None]
  - PAIN IN EXTREMITY [None]
  - PHARMACEUTICAL PRODUCT COMPLAINT [None]
  - PNEUMONIA VIRAL [None]
  - POLLAKIURIA [None]
  - RASH MACULAR [None]
  - SENSATION OF HEAVINESS [None]
  - SOCIAL AVOIDANT BEHAVIOUR [None]
  - THIRST [None]
  - VIRAL INFECTION [None]
  - WEIGHT INCREASED [None]
